FAERS Safety Report 18843002 (Version 1)
Quarter: 2021Q1

REPORT INFORMATION
  Report Type: Spontaneous
  Country: US (occurrence: US)
  Receive Date: 20210203
  Receipt Date: 20210203
  Transmission Date: 20210419
  Serious: Yes (Other)
  Sender: FDA-Public Use
  Company Number: None

PATIENT
  Age: 39 Year
  Sex: Male
  Weight: 92.25 kg

DRUGS (4)
  1. HABITROL NICOTINE REPLACEMENT [Concomitant]
  2. NICOTINE, TRANSDERMAL SYSTEM PATCH [Suspect]
     Active Substance: NICOTINE
     Indication: SMOKING CESSATION THERAPY
     Dosage: ?          QUANTITY:14 PATCH(ES);?
     Dates: start: 20210120, end: 20210120
  3. FLONASE [Concomitant]
     Active Substance: FLUTICASONE PROPIONATE
  4. MULTIVITAMIN [Concomitant]
     Active Substance: VITAMINS

REACTIONS (4)
  - Palpitations [None]
  - Counterfeit product administered [None]
  - Therapeutic product effect increased [None]
  - Product label issue [None]

NARRATIVE: CASE EVENT DATE: 20210120
